FAERS Safety Report 10351517 (Version 1)
Quarter: 2014Q3

REPORT INFORMATION
  Report Type: Spontaneous
  Country: DE (occurrence: DE)
  Receive Date: 20140730
  Receipt Date: 20140730
  Transmission Date: 20150326
  Serious: Yes (Other)
  Sender: FDA-Public Use
  Company Number: PHHY2014DE092569

PATIENT
  Age: 31 Year
  Sex: Male

DRUGS (5)
  1. METHYLPREDNISOLONE [Suspect]
     Active Substance: METHYLPREDNISOLONE
     Indication: HYPOPHYSITIS
     Dosage: 56 MG, DAILY
  2. THYROXINE [Concomitant]
     Active Substance: LEVOTHYROXINE
     Dosage: 75 UG, UNK
  3. IPILIMUMAB [Concomitant]
     Active Substance: IPILIMUMAB
     Indication: NODULAR MELANOMA
     Dosage: 3 MG/KG, UNK
  4. DEXAMETHASONE. [Suspect]
     Active Substance: DEXAMETHASONE
     Indication: HYPOPHYSITIS
     Dosage: 16 MG, DAILY
  5. HYDROCORTISONE. [Suspect]
     Active Substance: HYDROCORTISONE
     Indication: HYPOPHYSITIS
     Dosage: 20 MG, UNK

REACTIONS (7)
  - Blood testosterone decreased [Unknown]
  - Blood luteinising hormone decreased [Unknown]
  - Blood prolactin decreased [Unknown]
  - Blood follicle stimulating hormone decreased [Unknown]
  - Blood thyroid stimulating hormone decreased [Unknown]
  - Hypophysitis [Unknown]
  - Hypopituitarism [Unknown]
